FAERS Safety Report 7556472-7 (Version None)
Quarter: 2011Q2

REPORT INFORMATION
  Report Type: 
  Country: None (occurrence: None)
  Receive Date: 20110610
  Receipt Date: 20110526
  Transmission Date: 20111010
  Serious: Yes (Death)
  Sender: FDA-Public Use
  Company Number: AUR-APL-2011-01531

PATIENT
  Age: 57 Year
  Sex: Female
  Weight: 107 kg

DRUGS (5)
  1. ACTOS [Concomitant]
  2. METFORMIN HCL [Suspect]
     Indication: DIABETES MELLITUS
     Dosage: 1G-TID-ORAL
     Route: 048
  3. ZOCOR [Concomitant]
  4. TEGRETOL [Concomitant]
  5. DIOVAN [Concomitant]

REACTIONS (7)
  - BLOOD LACTIC ACID INCREASED [None]
  - RENAL IMPAIRMENT [None]
  - CARDIAC ARREST [None]
  - BLOOD CREATININE INCREASED [None]
  - RENAL FUNCTION TEST ABNORMAL [None]
  - METABOLIC ACIDOSIS [None]
  - DIARRHOEA [None]
